FAERS Safety Report 8997032 (Version 4)
Quarter: 2013Q3

REPORT INFORMATION
  Report Type: Spontaneous
  Country: JP (occurrence: JP)
  Receive Date: 20130104
  Receipt Date: 20130912
  Transmission Date: 20140515
  Serious: Yes (Hospitalization, Other)
  Sender: FDA-Public Use
  Company Number: JP-PFIZER INC-2013001328

PATIENT
  Age: 69 Year
  Sex: Female
  Weight: 33 kg

DRUGS (8)
  1. ANCARON [Suspect]
     Indication: VENTRICULAR TACHYCARDIA
     Dosage: TWO 400 MG DOSES
     Route: 048
     Dates: end: 201208
  2. SOTALOL HYDROCHLORIDE [Suspect]
     Indication: VENTRICULAR TACHYCARDIA
     Dosage: 40 MG, DAILY
     Route: 048
     Dates: start: 201208, end: 201208
  3. TRICHLORMETHIAZIDE [Concomitant]
     Dosage: UNK
     Dates: start: 2012
  4. RABEPRAZOLE SODIUM [Concomitant]
     Dosage: UNK
     Dates: start: 2012
  5. ALLOPURINOL [Concomitant]
     Dosage: UNK
     Dates: start: 2012
  6. LEVOTHYROXINE [Concomitant]
     Dosage: UNK
     Dates: start: 2012
  7. EFONIDIPINE HYDROCHLORIDE [Concomitant]
     Dosage: UNK
     Dates: start: 2012
  8. WARFARIN POTASSIUM [Concomitant]
     Dosage: UNK
     Dates: start: 2012

REACTIONS (13)
  - Toxicity to various agents [Recovering/Resolving]
  - Hypoglycaemia [Recovering/Resolving]
  - Torsade de pointes [Recovering/Resolving]
  - Pulmonary oedema [Recovering/Resolving]
  - Hypotension [Recovering/Resolving]
  - Ventricular fibrillation [Recovering/Resolving]
  - Sinus bradycardia [Recovering/Resolving]
  - Convulsion [Recovering/Resolving]
  - Depressed level of consciousness [Recovering/Resolving]
  - Electrocardiogram QT prolonged [Recovering/Resolving]
  - Bundle branch block left [Recovering/Resolving]
  - Cardiac failure congestive [Recovering/Resolving]
  - Cell marker increased [Unknown]
